FAERS Safety Report 23854505 (Version 2)
Quarter: 2024Q2

REPORT INFORMATION
  Report Type: Spontaneous
  Country: DE (occurrence: DE)
  Receive Date: 20240514
  Receipt Date: 20240610
  Transmission Date: 20240715
  Serious: No
  Sender: FDA-Public Use
  Company Number: DE-002147023-NVSC2024DE096012

PATIENT
  Sex: Male

DRUGS (1)
  1. COSENTYX [Suspect]
     Active Substance: SECUKINUMAB
     Indication: Psoriasis
     Dosage: UNK (EVERY 4 WEEKS)
     Route: 065
     Dates: start: 2020, end: 2020

REACTIONS (5)
  - Osteoarthritis [Unknown]
  - Psoriasis [Unknown]
  - Arthralgia [Not Recovered/Not Resolved]
  - Hypertension [Unknown]
  - Cartilage injury [Unknown]

NARRATIVE: CASE EVENT DATE: 20200101
